FAERS Safety Report 5169039-5 (Version None)
Quarter: 2006Q4

REPORT INFORMATION
  Report Type: 
  Country: None (occurrence: None)
  Receive Date: 20061211
  Receipt Date: 20060303
  Transmission Date: 20070319
  Serious: Yes (Other)
  Sender: FDA-Public Use
  Company Number: BR-ROCHE-439292

PATIENT
  Sex: Female
  Weight: 3.2 kg

DRUGS (1)
  1. ROACUTAN [Suspect]
     Indication: HIDRADENITIS
     Route: 064
     Dates: start: 20051001, end: 20051030

REACTIONS (4)
  - CAESAREAN SECTION [None]
  - DRUG EXPOSURE DURING PREGNANCY [None]
  - NO ADVERSE EFFECT [None]
  - NORMAL NEWBORN [None]
